FAERS Safety Report 20101520 (Version 1)
Quarter: 2021Q4

REPORT INFORMATION
  Report Type: Spontaneous
  Country: US (occurrence: US)
  Receive Date: 20211123
  Receipt Date: 20211123
  Transmission Date: 20220303
  Serious: No
  Sender: FDA-Public Use
  Company Number: US-JNJFOC-20211130317

PATIENT
  Sex: Male

DRUGS (10)
  1. TREMFYA [Suspect]
     Active Substance: GUSELKUMAB
     Indication: Psoriasis
     Route: 065
  2. LISINOPRIL [Concomitant]
     Active Substance: LISINOPRIL
  3. ATENOLOL [Concomitant]
     Active Substance: ATENOLOL
  4. LEVOTHYROXINE [Concomitant]
     Active Substance: LEVOTHYROXINE
  5. DORZOLAMIDE [Concomitant]
     Active Substance: DORZOLAMIDE
  6. TIMOLOL [Concomitant]
     Active Substance: TIMOLOL
  7. ALPHAGAN P [Concomitant]
     Active Substance: BRIMONIDINE TARTRATE
  8. TRAVOPROST [Concomitant]
     Active Substance: TRAVOPROST
  9. ATORVASTATIN [Concomitant]
     Active Substance: ATORVASTATIN
  10. INSULIN NOS [Concomitant]
     Active Substance: INSULIN NOS

REACTIONS (1)
  - Rash pruritic [Unknown]
